FAERS Safety Report 18286222 (Version 1)
Quarter: 2020Q3

REPORT INFORMATION
  Report Type: Other
  Country: NL (occurrence: NL)
  Receive Date: 20200919
  Receipt Date: 20200919
  Transmission Date: 20201103
  Serious: Yes (Other)
  Sender: FDA-Public Use
  Company Number: NL-INCYTE CORPORATION-2020IN008968

PATIENT

DRUGS (1)
  1. JAKAVI [Suspect]
     Active Substance: RUXOLITINIB
     Indication: PRIMARY MYELOFIBROSIS
     Dosage: 1 MG, Q12H (2D 1MG)
     Route: 065
     Dates: start: 202004, end: 20200902

REACTIONS (1)
  - Tuberculosis of genitourinary system [Not Recovered/Not Resolved]

NARRATIVE: CASE EVENT DATE: 20200616
